FAERS Safety Report 4756548-3 (Version None)
Quarter: 2005Q3

REPORT INFORMATION
  Report Type: 
  Country: None (occurrence: None)
  Receive Date: 20050830
  Receipt Date: 20050729
  Transmission Date: 20060218
  Serious: Yes (Other)
  Sender: FDA-Public Use
  Company Number: US-GLAXOSMITHKLINE-A0568293A

PATIENT
  Age: 27 Year
  Sex: Female

DRUGS (3)
  1. WELLBUTRIN XL [Suspect]
     Indication: DEPRESSION
     Route: 048
     Dates: end: 20050729
  2. ORTHO TRI-CYCLEN LO [Concomitant]
  3. ALPRAZOLAM [Concomitant]

REACTIONS (2)
  - CONVULSION [None]
  - DYSKINESIA [None]
